FAERS Safety Report 24749831 (Version 1)
Quarter: 2024Q4

REPORT INFORMATION
  Report Type: Report from Study
  Country: DE (occurrence: DE)
  Receive Date: 20241218
  Receipt Date: 20241218
  Transmission Date: 20250115
  Serious: Yes (Other)
  Sender: ELI LILLY AND COMPANY
  Company Number: DE-ELI_LILLY_AND_COMPANY-DE202409013091

PATIENT
  Age: 21 Year
  Sex: Female
  Weight: 65 kg

DRUGS (5)
  1. LEBRIKIZUMAB [Suspect]
     Active Substance: LEBRIKIZUMAB
     Indication: Dermatitis atopic
     Dosage: 250 MG, OTHER, TWICE
     Route: 058
     Dates: start: 20240814
  2. LEBRIKIZUMAB [Suspect]
     Active Substance: LEBRIKIZUMAB
     Dosage: 500 MG, UNKNOWN
     Route: 058
     Dates: start: 20240829, end: 20240912
  3. DIENOGEST\ETHINYL ESTRADIOL [Concomitant]
     Active Substance: DIENOGEST\ETHINYL ESTRADIOL
     Indication: Contraception
     Dosage: UNK UNK, UNKNOWN
     Route: 048
     Dates: start: 202104
  4. ADVANTAN MILK [Concomitant]
     Indication: Dermatitis atopic
     Dosage: UNK, UNKNOWN
     Route: 061
     Dates: start: 20230524
  5. ELIDEL [Concomitant]
     Active Substance: PIMECROLIMUS
     Indication: Dermatitis atopic
     Dosage: UNK UNK, PRN
     Route: 061
     Dates: start: 20240123

REACTIONS (1)
  - Drug intolerance [Recovering/Resolving]

NARRATIVE: CASE EVENT DATE: 20240814
